FAERS Safety Report 6291338-4 (Version None)
Quarter: 2009Q3

REPORT INFORMATION
  Report Type: 
  Country: None (occurrence: None)
  Receive Date: 20090730
  Receipt Date: 20090722
  Transmission Date: 20100115
  Serious: Yes (Hospitalization, Other)
  Sender: FDA-Public Use
  Company Number: DE-ORACLE-2009S1000243

PATIENT
  Age: 52 Year
  Sex: Male
  Weight: 80 kg

DRUGS (5)
  1. CUBICIN [Suspect]
     Indication: ENDOCARDITIS
     Route: 042
     Dates: end: 20070101
  2. CUBICIN [Suspect]
     Route: 042
     Dates: end: 20070101
  3. RIFAMPICIN [Concomitant]
     Indication: ENDOCARDITIS
  4. VANCOMYCIN [Concomitant]
     Indication: ENDOCARDITIS
  5. GENTAMICIN [Concomitant]
     Indication: ENDOCARDITIS

REACTIONS (3)
  - AGRANULOCYTOSIS [None]
  - HEART VALVE REPLACEMENT [None]
  - RASH GENERALISED [None]
